FAERS Safety Report 6603748-3 (Version None)
Quarter: 2010Q1

REPORT INFORMATION
  Report Type: 
  Country: None (occurrence: None)
  Receive Date: 20100226
  Receipt Date: 20090115
  Transmission Date: 20100710
  Serious: No
  Sender: FDA-Public Use
  Company Number: A0763785A

PATIENT
  Sex: Female

DRUGS (1)
  1. LAMICTAL CD [Suspect]
     Indication: ELEVATED MOOD
     Dosage: 50MG PER DAY
     Route: 048

REACTIONS (3)
  - FATIGUE [None]
  - HEADACHE [None]
  - TREMOR [None]
